FAERS Safety Report 5758691-9 (Version None)
Quarter: 2008Q2

REPORT INFORMATION
  Report Type: 
  Country: None (occurrence: None)
  Receive Date: 20080603
  Receipt Date: 20080603
  Transmission Date: 20081010
  Serious: Yes (Death)
  Sender: FDA-Public Use
  Company Number: None

PATIENT
  Sex: Female
  Weight: 53.6 kg

DRUGS (15)
  1. TEMOZOLOMIDE [Suspect]
     Indication: ACUTE MYELOID LEUKAEMIA
     Dosage: 100 MG/M2 (160 MG) QD PO
     Route: 048
     Dates: start: 20080430, end: 20080513
  2. TEMOZOLOMIDE [Suspect]
     Indication: ACUTE MYELOID LEUKAEMIA
     Dosage: 200 MG/M2 (320 MG) QD PO
     Route: 048
     Dates: start: 20080514, end: 20080520
  3. ATIVAN [Concomitant]
  4. HALDOL [Concomitant]
  5. ACETAMINOPHEN [Concomitant]
  6. HYDROXYPROPYL METHYLCELLULOSE (ISOPTO TEARS) [Concomitant]
  7. SALIVA SUBSTITUTE [Concomitant]
  8. ATROPINE (ISOPTO ATROPINE) [Concomitant]
  9. GLYCOPYRROLATE (ROBINUL) [Concomitant]
  10. SENNA (SENOKOT) [Concomitant]
  11. PROCHLORPERAZINE (COMPAZINE) [Concomitant]
  12. REGLAN [Concomitant]
  13. DIPHENHYDRAMINE (BENADRYL) [Concomitant]
  14. MORPHINE [Concomitant]
  15. DILAUDID [Concomitant]

REACTIONS (7)
  - ACUTE MYELOID LEUKAEMIA [None]
  - ATRIAL FIBRILLATION [None]
  - CARDIO-RESPIRATORY ARREST [None]
  - MALIGNANT NEOPLASM PROGRESSION [None]
  - RENAL INFARCT [None]
  - SPLENIC INFARCTION [None]
  - THROMBOCYTOPENIA [None]
